FAERS Safety Report 12895607 (Version 1)
Quarter: 2016Q4

REPORT INFORMATION
  Report Type: Spontaneous
  Country: TR (occurrence: TR)
  Receive Date: 20161030
  Receipt Date: 20161030
  Transmission Date: 20170207
  Serious: Yes (Hospitalization)
  Sender: FDA-Public Use
  Company Number: TR-009507513-1610TUR014688

PATIENT
  Age: 52 Year
  Sex: Female
  Weight: 83 kg

DRUGS (3)
  1. DIPROSPAN [Suspect]
     Active Substance: BETAMETHASONE DIPROPIONATE\BETAMETHASONE SODIUM PHOSPHATE
     Indication: RADICULOPATHY
  2. MUSCORIL [Concomitant]
     Active Substance: THIOCOLCHICOSIDE
     Dosage: 1 VIAL PER DAY, FOR 6 DAYS
     Route: 030
     Dates: start: 20161006, end: 20161011
  3. DIPROSPAN [Suspect]
     Active Substance: BETAMETHASONE DIPROPIONATE\BETAMETHASONE SODIUM PHOSPHATE
     Indication: INTERVERTEBRAL DISC DISORDER
     Dosage: TOTALLY 3 TIMES,1 VIAL PER DAY, IN EVERY 3 DAYS
     Route: 030
     Dates: start: 20161006, end: 20161014

REACTIONS (6)
  - Vulvovaginal pruritus [Recovering/Resolving]
  - Hot flush [Recovering/Resolving]
  - Burning sensation [Recovering/Resolving]
  - Generalised erythema [Recovering/Resolving]
  - Pruritus [Recovering/Resolving]
  - Hypersensitivity [Recovering/Resolving]

NARRATIVE: CASE EVENT DATE: 20161012
